FAERS Safety Report 12821520 (Version 2)
Quarter: 2016Q4

REPORT INFORMATION
  Report Type: Report from Study
  Country: FR (occurrence: FR)
  Receive Date: 20161007
  Receipt Date: 20161013
  Transmission Date: 20170207
  Serious: Yes (Other)
  Sender: FDA-Public Use
  Company Number: FR-ROCHE-ITM201407IM006355

PATIENT
  Age: 63 Year
  Sex: Female
  Weight: 48 kg

DRUGS (4)
  1. PIRFENIDONE [Suspect]
     Active Substance: PIRFENIDONE
     Indication: IDIOPATHIC PULMONARY FIBROSIS
     Dosage: 2403 MG
     Route: 048
     Dates: start: 20131122, end: 20140224
  2. PIRFENIDONE [Suspect]
     Active Substance: PIRFENIDONE
     Dosage: 1602 MG
     Route: 048
     Dates: start: 20140225, end: 20140626
  3. L-THYROXINE [Concomitant]
     Active Substance: LEVOTHYROXINE
     Indication: HYPOTHYROIDISM
     Route: 065
  4. EZETIMIBE. [Concomitant]
     Active Substance: EZETIMIBE
     Indication: HYPERCHOLESTEROLAEMIA
     Route: 065

REACTIONS (2)
  - Hepatitis [Recovered/Resolved]
  - Nausea [Recovered/Resolved]

NARRATIVE: CASE EVENT DATE: 20131125
